FAERS Safety Report 17006359 (Version 1)
Quarter: 2019Q4

REPORT INFORMATION
  Report Type: Spontaneous
  Country: DE (occurrence: DE)
  Receive Date: 20191107
  Receipt Date: 20191107
  Transmission Date: 20200122
  Serious: Yes (Other)
  Sender: FDA-Public Use
  Company Number: DE-PFIZER INC-2019481095

PATIENT
  Age: 57 Year
  Sex: Male

DRUGS (5)
  1. METOHEXAL SUCC [Suspect]
     Active Substance: METOPROLOL SUCCINATE
     Dosage: 47.5 MG TWICE DAILY (1-0-1)
     Route: 065
  2. METOHEXAL SUCC [Suspect]
     Active Substance: METOPROLOL SUCCINATE
     Dosage: 47.5 MG TWICE DAILY (1-0-1)
     Route: 065
  3. VALSACOR [Suspect]
     Active Substance: VALSARTAN
     Dosage: UNK UNK, BID (1-0-1)
     Route: 065
  4. ELIQUIS [Suspect]
     Active Substance: APIXABAN
     Dosage: UNK UNK, BID
     Route: 065
  5. AMLODIPINE BESILATE [Suspect]
     Active Substance: AMLODIPINE BESYLATE
     Dosage: UNK, QD (1/2-0-0)
     Route: 065

REACTIONS (4)
  - Atrial fibrillation [Unknown]
  - Atrial flutter [Unknown]
  - Performance status decreased [Unknown]
  - Heart rate decreased [Unknown]
